FAERS Safety Report 24207388 (Version 3)
Quarter: 2024Q4

REPORT INFORMATION
  Report Type: Report from Study
  Country: ES (occurrence: ES)
  Receive Date: 20240813
  Receipt Date: 20241022
  Transmission Date: 20250115
  Serious: Yes (Death, Hospitalization, Other)
  Sender: NOVARTIS
  Company Number: ES-002147023-NVSC2024ES153018

PATIENT
  Age: 59 Year
  Sex: Male

DRUGS (6)
  1. FABHALTA [Suspect]
     Active Substance: IPTACOPAN HYDROCHLORIDE
     Indication: IgA nephropathy
     Dosage: 200 MG, BID
     Route: 048
     Dates: start: 20240607
  2. FABHALTA [Suspect]
     Active Substance: IPTACOPAN HYDROCHLORIDE
     Dosage: 200 MG, BID
     Route: 048
     Dates: start: 20240626, end: 20240802
  3. CYCLOSPORINE [Concomitant]
     Active Substance: CYCLOSPORINE
     Indication: Product used for unknown indication
     Dosage: 50 MG, BID
     Route: 065
     Dates: start: 199710
  4. PREDNISONE [Concomitant]
     Active Substance: PREDNISONE
     Indication: Product used for unknown indication
     Dosage: 15 MG EVERY 24 HOURS
     Route: 065
     Dates: start: 199710
  5. PREDNISONE [Concomitant]
     Active Substance: PREDNISONE
     Dosage: 40 MG EVERY 24 HOURS WITH PROGRESSIVE TAPERING
     Route: 065
     Dates: start: 20240426
  6. MYCOPHENOLATE MOFETIL [Concomitant]
     Active Substance: MYCOPHENOLATE MOFETIL
     Indication: Product used for unknown indication
     Dosage: 1000 MG, BID
     Route: 065
     Dates: start: 199710

REACTIONS (18)
  - Visceral leishmaniasis [Fatal]
  - Upper gastrointestinal haemorrhage [Fatal]
  - Asthenia [Fatal]
  - Pancytopenia [Fatal]
  - Shock haemorrhagic [Fatal]
  - IgA nephropathy [Not Recovered/Not Resolved]
  - Disease progression [Not Recovered/Not Resolved]
  - Renal impairment [Recovering/Resolving]
  - Gastric ulcer [Unknown]
  - Duodenal ulcer [Unknown]
  - Stress ulcer [Unknown]
  - Melaena [Unknown]
  - Haematochezia [Unknown]
  - Jejunal ulcer [Unknown]
  - Small intestinal ulcer haemorrhage [Unknown]
  - Herpes zoster [Recovered/Resolved]
  - Cytomegalovirus infection [Recovered/Resolved]
  - Weight decreased [Recovering/Resolving]

NARRATIVE: CASE EVENT DATE: 20240627
